FAERS Safety Report 21785013 (Version 27)
Quarter: 2024Q4

REPORT INFORMATION
  Report Type: Spontaneous
  Country: IN (occurrence: IN)
  Receive Date: 20221227
  Receipt Date: 20241227
  Transmission Date: 20250115
  Serious: Yes (Hospitalization, Other)
  Sender: PFIZER
  Company Number: IN-PFIZER INC-PV202200128997

PATIENT
  Age: 70 Year
  Sex: Female

DRUGS (9)
  1. PALBOCICLIB [Suspect]
     Active Substance: PALBOCICLIB
     Dosage: UNK
     Route: 048
     Dates: start: 20220411
  2. PALBOCICLIB [Suspect]
     Active Substance: PALBOCICLIB
     Dosage: 125 MG, OD (ONCE A DAY) FOR 21 DAYS, 7 DAYS GAP
     Route: 048
  3. LETROZOLE [Concomitant]
     Active Substance: LETROZOLE
     Indication: Palliative care
     Dosage: UNK, 1X/DAY
  4. LETROZOLE [Concomitant]
     Active Substance: LETROZOLE
     Dosage: 10S (CIPLA), ONCE A DAY X28 DAYS TO CONTINUE
     Dates: start: 20240828
  5. LETROZOLE [Concomitant]
     Active Substance: LETROZOLE
     Dosage: 10S (CIPLA), X 28DAYS (ONCE A DAY X TO CONTINUE)
     Dates: start: 20241023
  6. CALCIUM CARBONATE\CHOLECALCIFEROL [Concomitant]
     Active Substance: CALCIUM CARBONATE\CHOLECALCIFEROL
     Dosage: TWICE DAILY (BD) TO CONTINUE
  7. ZOLEDRONIC ACID [Concomitant]
     Active Substance: ZOLEDRONIC ACID
     Dosage: UNK, MONTHLY
  8. ZOLEDRONIC ACID [Concomitant]
     Active Substance: ZOLEDRONIC ACID
     Dosage: 4 MG, 1X/DAY
     Dates: start: 20230911
  9. ZOLEDRONIC ACID [Concomitant]
     Active Substance: ZOLEDRONIC ACID
     Dosage: 4 MG X 1 DAYS (AS PER PROTOCOL)
     Dates: start: 20241023

REACTIONS (30)
  - Urinary tract infection [Recovering/Resolving]
  - Carcinoembryonic antigen increased [Unknown]
  - Blood pressure increased [Unknown]
  - Blood glucose increased [Unknown]
  - Body mass index increased [Unknown]
  - Carbohydrate antigen 15-3 increased [Unknown]
  - Haemoglobin decreased [Unknown]
  - Platelet count decreased [Unknown]
  - Mean platelet volume decreased [Unknown]
  - Furuncle [Recovered/Resolved]
  - Retracted nipple [Unknown]
  - Breast mass [Unknown]
  - Eosinophil count increased [Unknown]
  - Monocyte percentage increased [Unknown]
  - Basophil percentage increased [Unknown]
  - Haematocrit decreased [Unknown]
  - Neutrophil count decreased [Unknown]
  - Red blood cell count decreased [Unknown]
  - Red cell distribution width increased [Unknown]
  - White blood cell count decreased [Recovering/Resolving]
  - Eastern Cooperative Oncology Group performance status abnormal [Unknown]
  - Pain in extremity [Unknown]
  - Mean cell volume increased [Unknown]
  - Infection [Recovered/Resolved]
  - Neutrophil percentage decreased [Unknown]
  - Monocyte morphology abnormal [Unknown]
  - Blood urea increased [Unknown]
  - Neoplasm progression [Unknown]
  - Cellulitis [Recovered/Resolved]
  - Heart rate increased [Unknown]

NARRATIVE: CASE EVENT DATE: 20220731
